FAERS Safety Report 6260954-8 (Version None)
Quarter: 2009Q3

REPORT INFORMATION
  Report Type: 
  Country: None (occurrence: None)
  Receive Date: 20090709
  Receipt Date: 20090629
  Transmission Date: 20100115
  Serious: Yes (Death)
  Sender: FDA-Public Use
  Company Number: US-BRISTOL-MYERS SQUIBB COMPANY-14682660

PATIENT
  Age: 38 Year
  Sex: Male

DRUGS (9)
  1. BLEOMYCIN SULFATE [Suspect]
     Indication: HODGKIN'S DISEASE
  2. DOXORUBICIN HCL [Suspect]
     Indication: HODGKIN'S DISEASE
  3. VINCREX SULFATE [Suspect]
     Indication: HODGKIN'S DISEASE
  4. CHLORMETHINE HCL [Suspect]
     Indication: HODGKIN'S DISEASE
  5. PROCARBAZINE [Suspect]
     Indication: HODGKIN'S DISEASE
  6. PREDNISOLONE [Suspect]
     Indication: HODGKIN'S DISEASE
  7. VINBLASTINE SULFATE [Suspect]
     Indication: HODGKIN'S DISEASE
  8. DACARBAZINE [Suspect]
     Indication: HODGKIN'S DISEASE
  9. RADIOTHERAPY [Suspect]
     Indication: HODGKIN'S DISEASE

REACTIONS (1)
  - ACUTE MYELOID LEUKAEMIA [None]
